FAERS Safety Report 15300850 (Version 1)
Quarter: 2018Q3

REPORT INFORMATION
  Report Type: Spontaneous
  Country: DE (occurrence: DE)
  Receive Date: 20180821
  Receipt Date: 20180821
  Transmission Date: 20181010
  Serious: Yes (Other)
  Sender: FDA-Public Use
  Company Number: DE-MERCK KGAA-2054005

PATIENT

DRUGS (1)
  1. NOVOTHYROX [Suspect]
     Active Substance: LEVOTHYROXINE SODIUM
     Indication: PRODUCT USED FOR UNKNOWN INDICATION

REACTIONS (9)
  - Migraine [None]
  - Panic disorder [None]
  - Pruritus [None]
  - Obsessive thoughts [None]
  - Dyspnoea [None]
  - Muscle spasms [None]
  - Agraphia [None]
  - Seizure [None]
  - Tremor [None]
